FAERS Safety Report 5763966-3 (Version None)
Quarter: 2008Q2

REPORT INFORMATION
  Report Type: 
  Country: None (occurrence: None)
  Receive Date: 20080606
  Receipt Date: 20080606
  Transmission Date: 20081010
  Serious: Yes (Hospitalization)
  Sender: FDA-Public Use
  Company Number: None

PATIENT
  Age: 60 Year
  Sex: Female
  Weight: 68 kg

DRUGS (1)
  1. LEVAQUIN [Suspect]
     Indication: ANTIBIOTIC THERAPY
     Dosage: 500 MG NOW IV DRIP  ONCE
     Route: 041
     Dates: start: 20080603, end: 20080603

REACTIONS (2)
  - INFUSION SITE ERYTHEMA [None]
  - INJECTION SITE PRURITUS [None]
